FAERS Safety Report 6573096-9 (Version None)
Quarter: 2010Q1

REPORT INFORMATION
  Report Type: 
  Country: None (occurrence: None)
  Receive Date: 20100208
  Receipt Date: 20100125
  Transmission Date: 20100710
  Serious: Yes (Death)
  Sender: FDA-Public Use
  Company Number: US-JNJFOC-20100202897

PATIENT
  Sex: Female
  Weight: 6.5 kg

DRUGS (2)
  1. PARACETAMOL [Suspect]
     Route: 054
  2. PARACETAMOL [Suspect]
     Indication: INFLUENZA
     Dosage: DOSE 227 MG/KG/DAY, TREATMENT DURATION 1 DAY
     Route: 054

REACTIONS (3)
  - HYPOGLYCAEMIA [None]
  - LIVER INJURY [None]
  - OVERDOSE [None]
